FAERS Safety Report 5803072-2 (Version None)
Quarter: 2008Q3

REPORT INFORMATION
  Report Type: 
  Country: None (occurrence: None)
  Receive Date: 20080703
  Receipt Date: 20080623
  Transmission Date: 20090109
  Serious: Yes (Hospitalization)
  Sender: FDA-Public Use
  Company Number: 001448

PATIENT
  Age: 8 Year
  Sex: Male

DRUGS (5)
  1. BUSULFEX [Suspect]
     Indication: STEM CELL TRANSPLANT
     Dosage: 10 ML, INTRAVENOUS
     Route: 042
     Dates: start: 20061023, end: 20061024
  2. ANTILYMPHOCYTE IMMUNOGLOBULIN (RABBIT) (ANTILYMPHOCYTE IMMUNOGLOBULIN [Concomitant]
  3. FLUDARABINE PHOSPHATE [Concomitant]
  4. VALPROATE SODIUM [Concomitant]
  5. MIDAZOLAM HCL [Concomitant]

REACTIONS (10)
  - ANOREXIA [None]
  - CONVULSION [None]
  - DIARRHOEA [None]
  - ESCHERICHIA INFECTION [None]
  - FEBRILE NEUTROPENIA [None]
  - GRAFT VERSUS HOST DISEASE [None]
  - LIVER FUNCTION TEST ABNORMAL [None]
  - MALAISE [None]
  - STOMATITIS [None]
  - VOMITING [None]
